FAERS Safety Report 16320959 (Version 2)
Quarter: 2019Q2

REPORT INFORMATION
  Report Type: Spontaneous
  Country: US (occurrence: US)
  Receive Date: 20190516
  Receipt Date: 20190521
  Transmission Date: 20190711
  Serious: Yes (Death)
  Sender: FDA-Public Use
  Company Number: US-LUNDBECK-DKLU2076056

PATIENT
  Sex: Female
  Weight: 20 kg

DRUGS (10)
  1. SABRIL [Suspect]
     Active Substance: VIGABATRIN
     Indication: INFANTILE SPASMS
  2. DDAVP [Concomitant]
     Active Substance: DESMOPRESSIN ACETATE
     Indication: DIABETES INSIPIDUS
     Route: 065
  3. SABRIL [Suspect]
     Active Substance: VIGABATRIN
     Indication: EPILEPSY
     Route: 048
     Dates: start: 20150520
  4. DIASTAT [Concomitant]
     Active Substance: DIAZEPAM
     Indication: EPILEPSY
     Route: 065
  5. SOLU-CORTEF [Concomitant]
     Active Substance: HYDROCORTISONE SODIUM SUCCINATE
     Indication: ADRENAL INSUFFICIENCY
     Route: 065
  6. NORDITROPIN [Concomitant]
     Active Substance: SOMATROPIN
     Indication: GROWTH HORMONE DEFICIENCY
     Route: 065
  7. HYCET [Concomitant]
     Active Substance: ACETAMINOPHEN\HYDROCODONE BITARTRATE
     Indication: PAIN
     Route: 065
  8. SYNTHROID [Concomitant]
     Active Substance: LEVOTHYROXINE SODIUM
     Indication: HYPOTHYROIDISM
     Route: 065
  9. SABRIL [Suspect]
     Active Substance: VIGABATRIN
     Indication: SEIZURE
     Route: 065
     Dates: start: 201701
  10. MIRALAX [Concomitant]
     Active Substance: POLYETHYLENE GLYCOL 3350
     Indication: CONSTIPATION
     Route: 065

REACTIONS (1)
  - Death [Fatal]
